FAERS Safety Report 15838003 (Version 1)
Quarter: 2019Q1

REPORT INFORMATION
  Report Type: Spontaneous
  Country: US (occurrence: US)
  Receive Date: 20190117
  Receipt Date: 20190117
  Transmission Date: 20190417
  Serious: No
  Sender: FDA-Public Use
  Company Number: US-ALEXION PHARMACEUTICALS INC.-A201900432

PATIENT
  Age: 54 Year
  Sex: Female

DRUGS (2)
  1. STRENSIQ [Suspect]
     Active Substance: ASFOTASE ALFA
     Indication: OFF LABEL USE
  2. STRENSIQ [Suspect]
     Active Substance: ASFOTASE ALFA
     Indication: BONE DISORDER
     Dosage: 2 MG/KG, TIW
     Route: 058

REACTIONS (1)
  - Off label use [Unknown]
